FAERS Safety Report 6097244-2 (Version None)
Quarter: 2009Q1

REPORT INFORMATION
  Report Type: 
  Country: None (occurrence: None)
  Receive Date: 20090227
  Receipt Date: 20090224
  Transmission Date: 20090719
  Serious: Yes (Hospitalization)
  Sender: FDA-Public Use
  Company Number: B0561376A

PATIENT
  Age: 24 Year
  Sex: Female

DRUGS (4)
  1. CLAMOXYL [Suspect]
     Route: 048
     Dates: end: 20080903
  2. NORVIR [Concomitant]
     Indication: EXPOSURE TO COMMUNICABLE DISEASE
     Dates: start: 20080826
  3. REYATAZ [Concomitant]
     Indication: EXPOSURE TO COMMUNICABLE DISEASE
     Dates: start: 20080826
  4. TRUVADA [Concomitant]
     Indication: EXPOSURE TO COMMUNICABLE DISEASE
     Dates: start: 20080826

REACTIONS (3)
  - EXPOSURE TO COMMUNICABLE DISEASE [None]
  - PRURIGO [None]
  - RASH MACULAR [None]
